FAERS Safety Report 6839012-7 (Version None)
Quarter: 2010Q3

REPORT INFORMATION
  Report Type: 
  Country: None (occurrence: None)
  Receive Date: 20100713
  Receipt Date: 20081106
  Transmission Date: 20110219
  Serious: Yes (Hospitalization, Other)
  Sender: FDA-Public Use
  Company Number: US-PFIZER INC-2007036317

PATIENT
  Sex: Female
  Weight: 101.6 kg

DRUGS (28)
  1. CHANTIX [Suspect]
     Indication: SMOKING CESSATION THERAPY
     Dates: start: 20070201
  2. FLUOXETINE HCL [Suspect]
     Indication: ANXIETY
     Dates: start: 20070101, end: 20070101
  3. FLUOXETINE HCL [Suspect]
     Indication: PANIC ATTACK
  4. COREG [Suspect]
     Indication: HYPERTENSION
     Dates: start: 20080618
  5. HYDROCODONE BITARTRATE [Concomitant]
  6. LISINOPRIL [Concomitant]
     Indication: HYPERTENSION
  7. ADVAIR DISKUS 100/50 [Concomitant]
  8. LORTAB [Concomitant]
  9. DIAZEPAM [Concomitant]
     Indication: ANXIETY
  10. FUROSEMIDE [Concomitant]
  11. POTASSIUM [Concomitant]
  12. LOVASTATIN [Concomitant]
  13. CLONAZEPAM [Concomitant]
     Indication: ANXIETY
  14. CLONAZEPAM [Concomitant]
     Indication: SLEEP DISORDER
  15. CYCLOBENZAPRINE [Concomitant]
  16. ALBUTEROL [Concomitant]
  17. IBUPROFEN [Concomitant]
  18. VITAMIN E [Concomitant]
  19. BLACK COHOSH [Concomitant]
     Indication: FLUSHING
  20. OXYBUTYNIN CHLORIDE [Concomitant]
  21. KETOCONAZOLE [Concomitant]
     Indication: INFECTION
  22. NAPROXEN [Concomitant]
  23. CALCIUM [Concomitant]
     Dates: start: 20071101
  24. FLAXSEED OIL [Concomitant]
  25. VITAMIN B-12 [Concomitant]
  26. PROPOXYPHENE HCL AND ACETAMINOPHEN [Concomitant]
  27. VITAMIN D [Concomitant]
  28. ALL OTHER THERAPEUTIC PRODUCTS [Concomitant]

REACTIONS (19)
  - ANXIETY [None]
  - ASTHMA [None]
  - BLADDER DISORDER [None]
  - BLOOD PRESSURE INCREASED [None]
  - BONE DENSITY DECREASED [None]
  - DYSGEUSIA [None]
  - FATIGUE [None]
  - FEELING ABNORMAL [None]
  - FLUSHING [None]
  - HEADACHE [None]
  - INSOMNIA [None]
  - LIMB INJURY [None]
  - MALAISE [None]
  - NAUSEA [None]
  - OXYGEN SATURATION DECREASED [None]
  - PANIC ATTACK [None]
  - RECTAL PROLAPSE [None]
  - STRESS [None]
  - TOBACCO USER [None]
